FAERS Safety Report 14870047 (Version 4)
Quarter: 2019Q1

REPORT INFORMATION
  Report Type: Report from Study
  Country: JP (occurrence: JP)
  Receive Date: 20180509
  Receipt Date: 20190314
  Transmission Date: 20190417
  Serious: Yes (Other)
  Sender: FDA-Public Use
  Company Number: JP-AMGEN-JPNCT2016055079

PATIENT
  Sex: Male
  Weight: 60.6 kg

DRUGS (26)
  1. PANITUMUMAB [Suspect]
     Active Substance: PANITUMUMAB
     Dosage: 360 MILLIGRAM, Q2WK
     Route: 041
     Dates: start: 20160317, end: 20160317
  2. PANITUMUMAB [Suspect]
     Active Substance: PANITUMUMAB
     Dosage: UNK
     Route: 041
     Dates: start: 20180705, end: 20180823
  3. OXALIPLATIN. [Concomitant]
     Active Substance: OXALIPLATIN
     Dosage: 65 MILLIGRAM/SQ. METER, Q2WK
     Route: 041
     Dates: start: 20160421, end: 20160421
  4. 5-FU [FLUOROURACIL] [Concomitant]
     Active Substance: FLUOROURACIL
     Dosage: 2000 MILLIGRAM/SQ. METER, Q2WK
     Route: 041
     Dates: start: 20160317, end: 20160317
  5. PANITUMUMAB [Suspect]
     Active Substance: PANITUMUMAB
     Dosage: 360 MILLIGRAM, Q2WK
     Route: 041
     Dates: start: 20160526, end: 20160526
  6. OXALIPLATIN. [Concomitant]
     Active Substance: OXALIPLATIN
     Indication: COLON CANCER
     Dosage: 140 MILLIGRAM, Q2WK
     Route: 041
     Dates: start: 20160204, end: 20160218
  7. 5-FU [FLUOROURACIL] [Concomitant]
     Active Substance: FLUOROURACIL
     Indication: COLON CANCER
     Dosage: 4000 MILLIGRAM, Q2WK
     Route: 041
     Dates: start: 20160204, end: 20160218
  8. PANITUMUMAB [Suspect]
     Active Substance: PANITUMUMAB
     Dosage: 360 MILLIGRAM, Q2WK
     Route: 041
     Dates: start: 20160421, end: 20160421
  9. PANITUMUMAB [Suspect]
     Active Substance: PANITUMUMAB
     Indication: COLON CANCER
     Dosage: 360 MILLIGRAM, Q2WK
     Route: 041
     Dates: start: 20160204, end: 20160218
  10. OXALIPLATIN. [Concomitant]
     Active Substance: OXALIPLATIN
     Dosage: 65 MILLIGRAM/SQ. METER, Q2WK
     Route: 041
     Dates: start: 20160707, end: 20160707
  11. CALCIUM LEVOFOLINATE [Concomitant]
     Active Substance: LEVOLEUCOVORIN CALCIUM
     Indication: COLON CANCER
     Dosage: 325 MILLIGRAM, Q2WK
     Route: 041
     Dates: start: 20160204, end: 20160218
  12. CALCIUM LEVOFOLINATE [Concomitant]
     Active Substance: LEVOLEUCOVORIN CALCIUM
     Dosage: UNK, Q2WK
     Route: 041
     Dates: start: 20160421, end: 20160421
  13. 5-FU [FLUOROURACIL] [Concomitant]
     Active Substance: FLUOROURACIL
     Dosage: 2000 MILLIGRAM/SQ. METER, Q2WK
     Route: 041
     Dates: start: 20160421, end: 20160421
  14. 5-FU [FLUOROURACIL] [Concomitant]
     Active Substance: FLUOROURACIL
     Dosage: 2000 MILLIGRAM/SQ. METER, Q2WK
     Route: 041
     Dates: start: 20160707, end: 20160707
  15. PANITUMUMAB [Suspect]
     Active Substance: PANITUMUMAB
     Dosage: 360 MILLIGRAM, Q2WK
     Route: 041
     Dates: start: 20160707, end: 20160707
  16. OXALIPLATIN. [Concomitant]
     Active Substance: OXALIPLATIN
     Dosage: 65 MILLIGRAM/SQ. METER, Q2WK
     Route: 041
     Dates: start: 20160317, end: 20160317
  17. OXALIPLATIN. [Concomitant]
     Active Substance: OXALIPLATIN
     Dosage: 65 MILLIGRAM/SQ. METER, Q2WK
     Route: 041
     Dates: start: 20160526, end: 20160526
  18. CALCIUM LEVOFOLINATE [Concomitant]
     Active Substance: LEVOLEUCOVORIN CALCIUM
     Dosage: UNK, Q2WK
     Route: 041
     Dates: start: 20160707, end: 20160707
  19. 5-FU [FLUOROURACIL] [Concomitant]
     Active Substance: FLUOROURACIL
     Dosage: 2000 MILLIGRAM/SQ. METER, Q2WK
     Route: 041
     Dates: start: 20160804, end: 20160804
  20. CALCIUM LEVOFOLINATE [Concomitant]
     Active Substance: LEVOLEUCOVORIN CALCIUM
     Dosage: UNK, Q2WK
     Route: 041
     Dates: start: 20160526, end: 20160526
  21. CALCIUM LEVOFOLINATE [Concomitant]
     Active Substance: LEVOLEUCOVORIN CALCIUM
     Dosage: UNK, Q2WK
     Route: 041
     Dates: start: 20160804, end: 20160804
  22. OXALIPLATIN. [Concomitant]
     Active Substance: OXALIPLATIN
     Dosage: 65 MILLIGRAM/SQ. METER, Q2WK
     Route: 041
     Dates: start: 20160804, end: 20160804
  23. 5-FU [FLUOROURACIL] [Concomitant]
     Active Substance: FLUOROURACIL
     Dosage: 2000 MILLIGRAM/SQ. METER, Q2WK
     Route: 041
     Dates: start: 20160526, end: 20160526
  24. PANITUMUMAB [Suspect]
     Active Substance: PANITUMUMAB
     Dosage: 360 MILLIGRAM, Q2WK
     Route: 041
     Dates: start: 20160804, end: 20160804
  25. CALCIUM LEVOFOLINATE [Concomitant]
     Active Substance: LEVOLEUCOVORIN CALCIUM
     Dosage: UNK, Q2WK
     Route: 041
     Dates: start: 20160317, end: 20160317
  26. 5-FU [FLUOROURACIL] [Concomitant]
     Active Substance: FLUOROURACIL
     Dosage: UNK
     Route: 041
     Dates: start: 20180705, end: 20180823

REACTIONS (8)
  - Dermatitis acneiform [Recovering/Resolving]
  - Platelet count decreased [Not Recovered/Not Resolved]
  - Onychomadesis [Not Recovered/Not Resolved]
  - Hyperglycaemia [Recovering/Resolving]
  - Alopecia [Recovered/Resolved]
  - Neutrophil count decreased [Not Recovered/Not Resolved]
  - Neuropathy peripheral [Recovered/Resolved]
  - Blood bilirubin increased [Not Recovered/Not Resolved]
